FAERS Safety Report 4659611-0 (Version None)
Quarter: 2005Q2

REPORT INFORMATION
  Report Type: 
  Country: None (occurrence: None)
  Receive Date: 20050510
  Receipt Date: 20050427
  Transmission Date: 20051028
  Serious: Yes (Life-Threatening, Hospitalization)
  Sender: FDA-Public Use
  Company Number: 2005059930

PATIENT
  Age: 71 Year
  Sex: Female
  Weight: 48 kg

DRUGS (5)
  1. SOLU-MEDROL [Suspect]
     Indication: IMMUNOSUPPRESSION
     Dosage: 150 MG (1 IN 1 D), INTRAVENOUS
     Route: 042
     Dates: start: 20050328, end: 20050413
  2. ACYCLOVIR [Suspect]
     Indication: ILL-DEFINED DISORDER
     Dates: end: 20050413
  3. TACROLIMUS              (TACROLIMUS) [Suspect]
     Indication: ILL-DEFINED DISORDER
     Dates: end: 20050413
  4. GABEXATE MESILATE             (GABEXATE MESILATE) [Suspect]
     Indication: ILL-DEFINED DISORDER
     Dates: end: 20050413
  5. ALPROSTADIL [Suspect]
     Indication: ILL-DEFINED DISORDER
     Dates: end: 20050413

REACTIONS (10)
  - ALANINE AMINOTRANSFERASE INCREASED [None]
  - ASPARTATE AMINOTRANSFERASE INCREASED [None]
  - BILIRUBIN CONJUGATED INCREASED [None]
  - BLOOD ALKALINE PHOSPHATASE INCREASED [None]
  - BLOOD BILIRUBIN INCREASED [None]
  - DIALYSIS [None]
  - DUODENAL ULCER [None]
  - GAMMA-GLUTAMYLTRANSFERASE INCREASED [None]
  - LIVER TRANSPLANT REJECTION [None]
  - SEPSIS [None]
